FAERS Safety Report 9580519 (Version 1)
Quarter: 2013Q4

REPORT INFORMATION
  Report Type: Spontaneous
  Country: US (occurrence: US)
  Receive Date: 20131002
  Receipt Date: 20131002
  Transmission Date: 20140711
  Serious: No
  Sender: FDA-Public Use
  Company Number: US-B.I. PHARMACEUTICALS,INC./RIDGEFIELD-2013-BI-30022BP

PATIENT
  Age: 77 Year
  Sex: Female
  Weight: 95 kg

DRUGS (8)
  1. PRADAXA [Suspect]
     Indication: ATRIAL FIBRILLATION
     Dosage: 300 MG
     Route: 048
     Dates: start: 201210
  2. CARVEDILOL [Concomitant]
     Route: 048
  3. ALDACTONE [Concomitant]
     Route: 048
  4. LATANOPROST [Concomitant]
     Indication: GLAUCOMA
     Dosage: STRENGTH: 0.005%;
  5. BUMEX [Concomitant]
     Route: 048
  6. LIPITOR [Concomitant]
     Route: 048
  7. OMEPRAZOLE [Concomitant]
     Route: 048
  8. RYTHMOL [Concomitant]
     Dosage: 900 MG
     Route: 048

REACTIONS (3)
  - Rash [Not Recovered/Not Resolved]
  - Vein disorder [Not Recovered/Not Resolved]
  - Restless legs syndrome [Not Recovered/Not Resolved]
